FAERS Safety Report 16891034 (Version 1)
Quarter: 2019Q4

REPORT INFORMATION
  Report Type: Spontaneous
  Country: US (occurrence: US)
  Receive Date: 20191006
  Receipt Date: 20191006
  Transmission Date: 20200122
  Serious: Yes (Other)
  Sender: FDA-Public Use
  Company Number: None

PATIENT
  Age: 27 Year
  Sex: Female
  Weight: 73.35 kg

DRUGS (1)
  1. BUPROPION XR [Suspect]
     Active Substance: BUPROPION
     Indication: DEPRESSION
     Dates: start: 20160704, end: 20160724

REACTIONS (1)
  - Urticaria [None]

NARRATIVE: CASE EVENT DATE: 20160724
